FAERS Safety Report 8094650-1 (Version None)
Quarter: 2012Q1

REPORT INFORMATION
  Report Type: 
  Country: None (occurrence: None)
  Receive Date: 20120131
  Receipt Date: 20120118
  Transmission Date: 20120608
  Serious: Yes (Hospitalization)
  Sender: FDA-Public Use
  Company Number: US-CELGENEUS-163-21880-12012784

PATIENT
  Sex: Female

DRUGS (3)
  1. ZOMETA [Concomitant]
     Route: 065
  2. REVLIMID [Suspect]
     Indication: DIFFUSE LARGE B-CELL LYMPHOMA
     Dosage: 25 MILLIGRAM
     Route: 048
     Dates: start: 20111101
  3. STEROIDS [Concomitant]
     Route: 065

REACTIONS (2)
  - DIFFUSE LARGE B-CELL LYMPHOMA [None]
  - HYPERCALCAEMIA [None]
